FAERS Safety Report 7636900-9 (Version None)
Quarter: 2011Q3

REPORT INFORMATION
  Report Type: 
  Country: None (occurrence: None)
  Receive Date: 20110718
  Receipt Date: 20110705
  Transmission Date: 20111222
  Serious: Yes (Death)
  Sender: FDA-Public Use
  Company Number: THYM-1001236

PATIENT
  Age: 18 Year
  Sex: Female
  Weight: 52 kg

DRUGS (6)
  1. THIOTEPA [Concomitant]
  2. THYMOGLOBULIN [Suspect]
     Indication: BONE MARROW CONDITIONING REGIMEN
     Dosage: 50 MG, QD, INTRAVENOUS
     Route: 042
     Dates: start: 20090305, end: 20090308
  3. METHYLPREDNISOLONE [Concomitant]
  4. FLUDARABINE PHOSPHATE [Concomitant]
  5. TACROLIMUS [Concomitant]
  6. PREDNISOLONE [Concomitant]

REACTIONS (2)
  - ACUTE LYMPHOCYTIC LEUKAEMIA RECURRENT [None]
  - STEM CELL TRANSPLANT [None]
